FAERS Safety Report 9981056 (Version 1)
Quarter: 2014Q1

REPORT INFORMATION
  Report Type: Spontaneous
  Country: FI (occurrence: FI)
  Receive Date: 20140307
  Receipt Date: 20140307
  Transmission Date: 20141002
  Serious: Yes (Other)
  Sender: FDA-Public Use
  Company Number: FI-SUN PHARMACEUTICAL INDUSTRIES LTD-2014SUN00474

PATIENT
  Age: 61 Year
  Sex: Male

DRUGS (11)
  1. PANTOPRAZOLE 40 MG POWDER FOR SOLUTION FOR INJECTION [Suspect]
     Indication: PRODUCT USED FOR UNKNOWN INDICATION
     Dosage: 40 MG, UNK
     Route: 065
  2. VANCOMYCIN [Suspect]
     Dosage: 1 G, BID
  3. RIFAMPICIN [Suspect]
     Dosage: 600 MG, QD
  4. METRONIDAZOLE [Suspect]
     Dosage: 500 MG, TID
  5. LEVOFLOXACIN [Concomitant]
     Dosage: 500 MG, BID
  6. NAPROXEN [Concomitant]
     Dosage: 500MG ONE TO THREE TIMES DAILY
  7. PARACETAMOL [Concomitant]
     Dosage: 500 MG, UNK
  8. CODEINE PHOSPHATE [Concomitant]
     Dosage: 30 MG, QD
  9. METHYLPREDNISOLONE [Concomitant]
     Dosage: 80 MG, BID
  10. METHYLPREDNISOLONE [Concomitant]
     Dosage: 12 MG, UNK
  11. METHYLPREDNISOLONE [Concomitant]
     Dosage: 40 UNK, UNK

REACTIONS (1)
  - Drug reaction with eosinophilia and systemic symptoms [Recovered/Resolved]
